FAERS Safety Report 15682781 (Version 1)
Quarter: 2018Q4

REPORT INFORMATION
  Report Type: Spontaneous
  Country: CO (occurrence: CO)
  Receive Date: 20181203
  Receipt Date: 20181203
  Transmission Date: 20190205
  Serious: Yes (Other)
  Sender: FDA-Public Use
  Company Number: CO-BAYER-2018-218394

PATIENT
  Age: 18 Year
  Sex: Female

DRUGS (1)
  1. ASPIRINA 100 MG [Suspect]
     Active Substance: ASPIRIN
     Dosage: UNK
     Dates: start: 20181124

REACTIONS (10)
  - Asthenia [Unknown]
  - Muscle spasms [Unknown]
  - Yellow skin [Unknown]
  - Fall [Unknown]
  - Blood pressure decreased [Unknown]
  - Myocardial infarction [Unknown]
  - Cerebrovascular accident [Unknown]
  - Depressed level of consciousness [Unknown]
  - Chest discomfort [Unknown]
  - Paraesthesia [Unknown]
